FAERS Safety Report 4386343-9 (Version None)
Quarter: 2004Q2

REPORT INFORMATION
  Report Type: 
  Country: None (occurrence: None)
  Receive Date: 20040628
  Receipt Date: 20040628
  Transmission Date: 20050107
  Serious: No
  Sender: FDA-Public Use
  Company Number: None

PATIENT
  Age: 43 Year
  Sex: Male
  Weight: 98.8842 kg

DRUGS (3)
  1. GENERIC OXYCONTIN 80 MG ^OXYER^ [Suspect]
     Indication: BACK PAIN
     Dosage: 80MG PO Q 8 HRS
     Route: 048
     Dates: start: 20040501, end: 20040601
  2. GENERIC OXYCONTIN 80 MG ^OXYER^ [Suspect]
     Indication: PAIN IN EXTREMITY
     Dosage: 80MG PO Q 8 HRS
     Route: 048
     Dates: start: 20040501, end: 20040601
  3. GENERIC OXYCONTIN 80 MG ^OXYER^ [Suspect]
     Indication: SINUSITIS
     Dosage: 80MG PO Q 8 HRS
     Route: 048
     Dates: start: 20040501, end: 20040601

REACTIONS (3)
  - DRUG EFFECT DECREASED [None]
  - NAUSEA [None]
  - PHARMACEUTICAL PRODUCT COMPLAINT [None]
